FAERS Safety Report 8421933 (Version 5)
Quarter: 2013Q1

REPORT INFORMATION
  Report Type: Spontaneous
  Country: US (occurrence: US)
  Receive Date: 20120223
  Receipt Date: 20130222
  Transmission Date: 20140127
  Serious: Yes (Death, Other)
  Sender: FDA-Public Use
  Company Number: US-PFIZER INC-2012045427

PATIENT
  Age: 72 Year
  Sex: Female

DRUGS (4)
  1. SUTENT [Suspect]
     Indication: RENAL CELL CARCINOMA
     Dosage: 25 MG, CYCLIC, 25MG 4WEEKS ON 2 WEEKS OFF
     Route: 048
     Dates: start: 20100804, end: 20120124
  2. LORAZEPAM [Concomitant]
     Dosage: 0.5 TO 1MG
     Route: 048
     Dates: end: 20120212
  3. ROXANOL [Concomitant]
     Dosage: 20 MG/ML, 0.5 TO 1 ML OF 1 TO 2 HRS
     Dates: end: 20120212
  4. CYMBALTA [Concomitant]
     Indication: DEPRESSION
     Dosage: UNK
     Dates: start: 20111108, end: 20120117

REACTIONS (4)
  - Disease progression [Fatal]
  - Renal cell carcinoma [Fatal]
  - Liver function test abnormal [Not Recovered/Not Resolved]
  - Nausea [Unknown]
